FAERS Safety Report 18645225 (Version 3)
Quarter: 2021Q1

REPORT INFORMATION
  Report Type: Spontaneous
  Country: None (occurrence: US)
  Receive Date: 20201222
  Receipt Date: 20210318
  Transmission Date: 20210419
  Serious: Yes (Hospitalization, Other)
  Sender: FDA-Public Use
  Company Number: US-SPROUT PHARMACEUTICALS, INC.-2020SP000225

PATIENT
  Age: 61 Year
  Sex: Female
  Weight: 65.74 kg

DRUGS (2)
  1. VAGISAN [Concomitant]
     Active Substance: LACTIC ACID, DL-\SODIUM LACTATE
     Indication: PRODUCT USED FOR UNKNOWN INDICATION
  2. ADDYI [Suspect]
     Active Substance: FLIBANSERIN
     Indication: PRODUCT USED FOR UNKNOWN INDICATION
     Route: 048
     Dates: start: 20200925, end: 20201218

REACTIONS (1)
  - Myocardial infarction [Recovering/Resolving]

NARRATIVE: CASE EVENT DATE: 20201215
